FAERS Safety Report 16813411 (Version 2)
Quarter: 2019Q3

REPORT INFORMATION
  Report Type: Spontaneous
  Country: CA (occurrence: CA)
  Receive Date: 20190917
  Receipt Date: 20190917
  Transmission Date: 20191005
  Serious: Yes (Hospitalization, Other)
  Sender: FDA-Public Use
  Company Number: PHHY2019CA214512

PATIENT
  Age: 87 Year
  Sex: Female

DRUGS (2)
  1. SANDOSTATIN LAR DEPOT [Suspect]
     Active Substance: OCTREOTIDE ACETATE
     Indication: PITUITARY TUMOUR BENIGN
     Dosage: 20 MG, UNK
     Route: 030
  2. CODEINE PHOSPHATE [Suspect]
     Active Substance: CODEINE PHOSPHATE
     Indication: PRODUCT USED FOR UNKNOWN INDICATION
     Dosage: UNK
     Route: 065

REACTIONS (25)
  - Oropharyngeal pain [Recovered/Resolved]
  - Excessive cerumen production [Recovered/Resolved]
  - Heart rate irregular [Recovered/Resolved]
  - Hypoacusis [Recovered/Resolved]
  - Memory impairment [Recovered/Resolved]
  - Cardiac flutter [Recovered/Resolved]
  - Full blood count decreased [Recovered/Resolved]
  - Nasopharyngitis [Recovered/Resolved]
  - Inappropriate schedule of product administration [Recovered/Resolved]
  - Body temperature increased [Recovered/Resolved]
  - Fall [Recovered/Resolved]
  - Hip fracture [Recovered/Resolved]
  - Rash erythematous [Recovered/Resolved]
  - Ventricular extrasystoles [Recovered/Resolved]
  - Weight increased [Recovered/Resolved]
  - Blood pressure systolic increased [Recovered/Resolved]
  - Gait disturbance [Recovered/Resolved]
  - Pallor [Recovered/Resolved]
  - General physical health deterioration [Recovered/Resolved]
  - Fat tissue increased [Recovered/Resolved]
  - Injection site pruritus [Recovered/Resolved]
  - Asthenia [Recovered/Resolved]
  - Arthralgia [Recovered/Resolved]
  - Cough [Recovered/Resolved]
  - Drug hypersensitivity [Recovered/Resolved]
